FAERS Safety Report 7430028-9 (Version None)
Quarter: 2011Q2

REPORT INFORMATION
  Report Type: 
  Country: None (occurrence: None)
  Receive Date: 20110421
  Receipt Date: 20110407
  Transmission Date: 20111010
  Serious: Yes (Hospitalization)
  Sender: FDA-Public Use
  Company Number: ES-CELGENEUS-144-21880-11040711

PATIENT
  Age: 76 Year
  Sex: Male

DRUGS (3)
  1. MORPHINE [Suspect]
     Indication: MULTIPLE MYELOMA
     Route: 051
     Dates: start: 20101207, end: 20101217
  2. REVLIMID [Suspect]
     Indication: MULTIPLE MYELOMA
     Dosage: 10 MILLIGRAM
     Route: 048
     Dates: start: 20101203, end: 20101210
  3. MORPHINE [Suspect]
     Route: 065
     Dates: start: 20101130, end: 20101207

REACTIONS (1)
  - ILEUS PARALYTIC [None]
